FAERS Safety Report 9098886 (Version 1)
Quarter: 2013Q1

REPORT INFORMATION
  Report Type: Spontaneous
  Country: NL (occurrence: NL)
  Receive Date: 20130213
  Receipt Date: 20130213
  Transmission Date: 20140127
  Serious: Yes (Hospitalization)
  Sender: FDA-Public Use
  Company Number: NL-JNJFOC-20130201831

PATIENT
  Age: 81 Year
  Sex: Male
  Weight: 123 kg

DRUGS (4)
  1. XARELTO [Suspect]
     Indication: THROMBOSIS PROPHYLAXIS
     Route: 048
     Dates: start: 20130111, end: 20130121
  2. XARELTO [Suspect]
     Indication: SURGERY
     Route: 048
     Dates: start: 20130111, end: 20130121
  3. PARACETAMOL [Concomitant]
     Route: 065
     Dates: start: 20130111
  4. HYDROCHLOROTHIAZIDE [Concomitant]
     Route: 065
     Dates: start: 2004

REACTIONS (2)
  - Pulmonary embolism [Recovered/Resolved]
  - Drug ineffective [Unknown]
